FAERS Safety Report 22206099 (Version 1)
Quarter: 2023Q2

REPORT INFORMATION
  Report Type: Spontaneous
  Country: BF (occurrence: BF)
  Receive Date: 20230413
  Receipt Date: 20230413
  Transmission Date: 20230722
  Serious: Yes (Hospitalization, Other)
  Sender: FDA-Public Use
  Company Number: BF-ALKEM LABORATORIES LIMITED-BF-ALKEM-2023-03906

PATIENT
  Age: 25 Year
  Sex: Male

DRUGS (2)
  1. DICLOFENAC [Suspect]
     Active Substance: DICLOFENAC
     Indication: Dental care
     Dosage: UNK
     Route: 065
  2. ACETAMINOPHEN [Suspect]
     Active Substance: ACETAMINOPHEN
     Indication: Dental care
     Dosage: UNK
     Route: 065

REACTIONS (3)
  - Peritonitis [Recovering/Resolving]
  - Peptic ulcer perforation [Recovering/Resolving]
  - Cellulitis [Recovering/Resolving]
